FAERS Safety Report 21087842 (Version 6)
Quarter: 2023Q2

REPORT INFORMATION
  Report Type: Report from Study
  Country: US (occurrence: US)
  Receive Date: 20220715
  Receipt Date: 20230502
  Transmission Date: 20230721
  Serious: Yes (Hospitalization, Other)
  Sender: FDA-Public Use
  Company Number: US-ABBVIE-22K-163-4469335-00

PATIENT
  Sex: Male

DRUGS (2)
  1. IMBRUVICA [Suspect]
     Active Substance: IBRUTINIB
     Indication: Waldenstrom^s macroglobulinaemia
     Dosage: FORM STRENGTH: 420 MG/END DATE- APR 2021
     Route: 048
     Dates: start: 20210413
  2. IMBRUVICA [Suspect]
     Active Substance: IBRUTINIB
     Indication: Waldenstrom^s macroglobulinaemia
     Dosage: FORM STRENGTH: 420 MG
     Route: 048
     Dates: start: 20210414

REACTIONS (6)
  - Cataract [Unknown]
  - Asthenia [Unknown]
  - Urinary retention [Unknown]
  - Urinary tract infection [Unknown]
  - Hypoaesthesia [Recovering/Resolving]
  - Sepsis [Unknown]
